FAERS Safety Report 11123503 (Version 1)
Quarter: 2015Q2

REPORT INFORMATION
  Report Type: Spontaneous
  Country: TH (occurrence: TH)
  Receive Date: 20150519
  Receipt Date: 20150519
  Transmission Date: 20150821
  Serious: Yes (Death, Hospitalization, Other)
  Sender: FDA-Public Use
  Company Number: TH-MYLANLABS-2015M1016372

PATIENT

DRUGS (5)
  1. VINCRISTINE [Suspect]
     Active Substance: VINCRISTINE
     Indication: DIFFUSE LARGE B-CELL LYMPHOMA
     Dosage: 2000MCG
     Route: 042
  2. DOXORUBICIN [Suspect]
     Active Substance: DOXORUBICIN
     Indication: DIFFUSE LARGE B-CELL LYMPHOMA
     Dosage: 70MG
     Route: 042
  3. CYCLOPHOSPHAMIDE. [Suspect]
     Active Substance: CYCLOPHOSPHAMIDE
     Indication: DIFFUSE LARGE B-CELL LYMPHOMA
     Dosage: 100MG
     Route: 042
  4. PREDNISOLONE. [Suspect]
     Active Substance: PREDNISOLONE
     Indication: DIFFUSE LARGE B-CELL LYMPHOMA
     Dosage: 90 MG/DAY FOR 5 DAYS
     Route: 048
  5. IMIPENEM [Concomitant]
     Active Substance: IMIPENEM
     Indication: BACTERIURIA
     Route: 042

REACTIONS (4)
  - Neutropenia [Fatal]
  - Infectious colitis [Recovering/Resolving]
  - Infection [Fatal]
  - Candida infection [Recovering/Resolving]
